FAERS Safety Report 6090968-2 (Version None)
Quarter: 2009Q1

REPORT INFORMATION
  Report Type: 
  Country: None (occurrence: None)
  Receive Date: 20090217
  Receipt Date: 20090217
  Transmission Date: 20090719
  Serious: Yes (Hospitalization)
  Sender: FDA-Public Use
  Company Number: None

PATIENT
  Age: 73 Year
  Sex: Female
  Weight: 67.586 kg

DRUGS (4)
  1. CALCIUM SALT (CALCIUM SALT) (FORMULATION UNKNOWN) [Suspect]
     Indication: DRUG USE FOR UNKNOWN INDICATION
     Dosage: UNK/SINGLE DOSE/INTRAMUSCULAR
     Route: 030
     Dates: start: 20081008, end: 20081008
  2. BLINDED VACCINE TRIAL MED INJECTION (BLINDED VACCINE TRIAL MED) [Suspect]
     Indication: OSTEOPENIA
     Dosage: UNK/UNK/ORAL
     Route: 048
     Dates: start: 20030201, end: 20081017
  3. CALCIUM CARBONATE (CALCIUM CARBONATE) (FORMULATION UNKNOWN) [Suspect]
     Indication: MINERAL SUPPLEMENTATION
     Dosage: UNK/UNK/ORAL
     Route: 048
     Dates: start: 20080101, end: 20081017
  4. HYDROCHLOROTHIAZIDE [Concomitant]

REACTIONS (5)
  - AMNESIA [None]
  - FATIGUE [None]
  - HYPERCALCAEMIA [None]
  - NAUSEA [None]
  - PAIN [None]
